FAERS Safety Report 10362877 (Version 1)
Quarter: 2014Q3

REPORT INFORMATION
  Report Type: Spontaneous
  Country: GB (occurrence: None)
  Receive Date: 20140731
  Receipt Date: 20140731
  Transmission Date: 20150326
  Serious: Yes (Other)
  Sender: FDA-Public Use
  Company Number: AUR-APL-2014-08053

PATIENT
  Age: 63 Year
  Sex: Female
  Weight: 67.6 kg

DRUGS (2)
  1. CALCICHEW D3 (CALCIUM CARBONATE, COLECALCIFEROL) [Concomitant]
  2. LISINOPRIL. [Suspect]
     Active Substance: LISINOPRIL
     Indication: HYPERTENSION
     Route: 048
     Dates: start: 20120713, end: 20121220

REACTIONS (4)
  - Fatigue [None]
  - Stomatitis [None]
  - Tongue ulceration [None]
  - Migraine with aura [None]

NARRATIVE: CASE EVENT DATE: 201207
